FAERS Safety Report 6698999-6 (Version None)
Quarter: 2010Q2

REPORT INFORMATION
  Report Type: 
  Country: None (occurrence: None)
  Receive Date: 20100427
  Receipt Date: 20100414
  Transmission Date: 20101027
  Serious: Yes (Death)
  Sender: FDA-Public Use
  Company Number: PK-WATSON-2010-05302

PATIENT
  Sex: Male
  Weight: 1.02 kg

DRUGS (2)
  1. PREDNISOLONE [Suspect]
     Indication: PEMPHIGUS
     Dosage: 60 MG/D X 2MO THEN 30 MG/D FOR REMAINDER OF PREGNANCY
     Route: 064
  2. AZATHIOPRINE [Suspect]
     Indication: DRUG USE FOR UNKNOWN INDICATION
     Dosage: 150 MG, DAILY, 6 WKS PRIOR TO AND FOR FIRST 20WKS OF PREGNANCY
     Route: 064

REACTIONS (1)
  - APLASIA CUTIS CONGENITA [None]
